FAERS Safety Report 25844645 (Version 4)
Quarter: 2025Q4

REPORT INFORMATION
  Report Type: Spontaneous
  Country: CA (occurrence: CA)
  Receive Date: 20250925
  Receipt Date: 20251104
  Transmission Date: 20260117
  Serious: Yes (Other)
  Sender: CELLTRION
  Company Number: CA-CELLTRION INC.-2025CA033919

PATIENT

DRUGS (6)
  1. INFLIXIMAB [Suspect]
     Active Substance: INFLIXIMAB
     Indication: Colitis ulcerative
     Dosage: REMSIMA - SC - MAINTENANCE - 120 MG - SC (SUBCUTANEOUS) EVERY 2 WEEKS
     Route: 058
     Dates: start: 20250422, end: 2025
  2. INFLIXIMAB [Suspect]
     Active Substance: INFLIXIMAB
     Indication: Colitis ulcerative
     Dosage: REMDANTRY - LOADING - 500 MG - IV (INTRAVENOUS)
     Route: 042
  3. INFLIXIMAB [Suspect]
     Active Substance: INFLIXIMAB
     Dosage: 10 MG/KG, Q4WEEKS
  4. INFLIXIMAB [Suspect]
     Active Substance: INFLIXIMAB
     Dosage: 928 MG (10 MG/KG) Q4WEEK - NEW
     Route: 042
     Dates: start: 20251001
  5. INFLIXIMAB [Suspect]
     Active Substance: INFLIXIMAB
     Dosage: 10 MG/KG Q4WEEK
     Route: 042
     Dates: start: 20251027
  6. PREDNISONE [Concomitant]
     Active Substance: PREDNISONE
     Indication: Product used for unknown indication
     Dosage: 40 MG - TAPERING DOSE
     Route: 065

REACTIONS (5)
  - Colitis ulcerative [Unknown]
  - Overdose [Unknown]
  - Off label use [Unknown]
  - Therapy non-responder [Unknown]
  - Inappropriate schedule of product administration [Unknown]

NARRATIVE: CASE EVENT DATE: 20250901
